FAERS Safety Report 18247768 (Version 6)
Quarter: 2024Q2

REPORT INFORMATION
  Report Type: Report from Study
  Country: KR (occurrence: KR)
  Receive Date: 20200909
  Receipt Date: 20240527
  Transmission Date: 20240716
  Serious: Yes (Death, Hospitalization)
  Sender: FDA-Public Use
  Company Number: None

PATIENT
  Age: 51 Year
  Sex: Female

DRUGS (11)
  1. OPSUMIT [Suspect]
     Active Substance: MACITENTAN
     Indication: Pulmonary arterial hypertension
     Dosage: 10 MG, OD
     Route: 048
     Dates: start: 20170824, end: 20171002
  2. OPSUMIT [Suspect]
     Active Substance: MACITENTAN
     Indication: Pulmonary hypertension
  3. FERROUS SULFATE [Concomitant]
     Active Substance: FERROUS SULFATE
     Dosage: 2 DF, QD
     Route: 048
     Dates: start: 20150910, end: 20171102
  4. KALLIKREIN [Concomitant]
     Active Substance: KALLIKREIN
     Dosage: 2 DF, QD
     Route: 048
     Dates: start: 20030411, end: 20171102
  5. CITRACAL F [Concomitant]
     Dosage: 2 DF, QD
     Route: 048
     Dates: start: 20051212, end: 20171102
  6. SERMION [NICERGOLINE] [Concomitant]
     Dosage: 2 DF, QD
     Route: 048
     Dates: start: 20070201, end: 20171102
  7. BAMIDE [Concomitant]
     Dosage: 2 DF, QD
     Route: 048
     Dates: start: 20120406, end: 20171102
  8. ADALAT [Concomitant]
     Active Substance: NIFEDIPINE
     Dosage: 1 DF, UNK
     Route: 048
     Dates: start: 20090330, end: 20171102
  9. FOLIC ACID [Concomitant]
     Active Substance: FOLIC ACID
     Dosage: 1 DF, QD
     Route: 048
     Dates: start: 20090724, end: 20171102
  10. CILAZAPRIL ANHYDROUS [Concomitant]
     Active Substance: CILAZAPRIL ANHYDROUS
     Dosage: 1 DF, QD
     Route: 048
     Dates: start: 20121116, end: 20171102
  11. PROGRAF [Concomitant]
     Active Substance: TACROLIMUS
     Dosage: 2 DF, QD
     Route: 048
     Dates: start: 20060429, end: 20171102

REACTIONS (8)
  - Pulmonary arterial hypertension [Fatal]
  - Condition aggravated [Fatal]
  - Transaminases increased [Unknown]
  - Chronic gastritis [Unknown]
  - Gastrooesophageal reflux disease [Unknown]
  - Decreased appetite [Recovered/Resolved]
  - Myalgia [Recovered/Resolved]
  - Dyspepsia [Unknown]

NARRATIVE: CASE EVENT DATE: 20171001
